FAERS Safety Report 12382154 (Version 1)
Quarter: 2016Q2

REPORT INFORMATION
  Report Type: Spontaneous
  Country: PR (occurrence: PR)
  Receive Date: 20160518
  Receipt Date: 20160518
  Transmission Date: 20160815
  Serious: No
  Sender: FDA-Public Use
  Company Number: PR-PERRIGO-15PR005092

PATIENT
  Age: 50 Year
  Sex: Male
  Weight: 78.5 kg

DRUGS (1)
  1. MOMETASONE FUROATE. [Suspect]
     Active Substance: MOMETASONE FUROATE
     Indication: ACNE
     Dosage: 1 SMALL APPLICATION, SINGLE
     Route: 061
     Dates: start: 20150501, end: 20150501

REACTIONS (4)
  - Skin exfoliation [Recovering/Resolving]
  - Skin haemorrhage [Recovered/Resolved]
  - Skin fissures [Recovering/Resolving]
  - Off label use [Recovered/Resolved]

NARRATIVE: CASE EVENT DATE: 20150501
